FAERS Safety Report 6095632-1 (Version None)
Quarter: 2009Q1

REPORT INFORMATION
  Report Type: 
  Country: None (occurrence: None)
  Receive Date: 20090227
  Receipt Date: 20080512
  Transmission Date: 20090719
  Serious: No
  Sender: FDA-Public Use
  Company Number: A0727450A

PATIENT
  Age: 44 Year
  Sex: Female

DRUGS (3)
  1. LAMICTAL [Suspect]
     Indication: ANXIETY DISORDER
     Dosage: 25MG PER DAY
     Route: 048
     Dates: start: 20080418
  2. VICOPROFEN [Concomitant]
  3. HYDROCODONE [Concomitant]

REACTIONS (5)
  - BLEPHAROSPASM [None]
  - FATIGUE [None]
  - HYPOHIDROSIS [None]
  - SOMNOLENCE [None]
  - TREMOR [None]
